FAERS Safety Report 7061454-8 (Version None)
Quarter: 2010Q4

REPORT INFORMATION
  Report Type: 
  Country: None (occurrence: None)
  Receive Date: 20101026
  Receipt Date: 20101012
  Transmission Date: 20110411
  Serious: Yes (Hospitalization, Other)
  Sender: FDA-Public Use
  Company Number: CA-ELI_LILLY_AND_COMPANY-CA201010002503

PATIENT
  Sex: Female

DRUGS (14)
  1. ZYPREXA [Suspect]
     Indication: SCHIZOPHRENIA
     Dosage: 10 MG, EACH EVENING
  2. ZYPREXA [Suspect]
     Dosage: 7.5 MG, EACH EVENING
  3. ZYPREXA [Suspect]
     Dosage: 5 MG, EACH EVENING
  4. ZYPREXA [Suspect]
     Dosage: 2.5 MG, EACH EVENING
  5. PAXIL [Concomitant]
     Dosage: 40 MG, DAILY (1/D)
  6. PAXIL [Concomitant]
     Dosage: 50 MG, DAILY (1/D)
  7. LITHIUM [Concomitant]
     Dosage: 1200 MG, DAILY (1/D)
  8. DALMANE [Concomitant]
  9. LIPITOR [Concomitant]
  10. ASAPHEN [Concomitant]
     Dosage: 10 MG, UNK
  11. ASAPHEN [Concomitant]
     Dosage: 15 MG, UNK
  12. ATIVAN [Concomitant]
     Dosage: 1 MG, AS NEEDED
  13. COLACE [Concomitant]
     Dosage: 200 MG, AS NEEDED
  14. SENOKOT [Concomitant]

REACTIONS (8)
  - BLOOD GLUCOSE INCREASED [None]
  - HYPERTENSION [None]
  - OBSESSIVE-COMPULSIVE DISORDER [None]
  - PATELLOFEMORAL PAIN SYNDROME [None]
  - POOR PERIPHERAL CIRCULATION [None]
  - SCHIZOPHRENIA [None]
  - TYPE 2 DIABETES MELLITUS [None]
  - WEIGHT INCREASED [None]
